FAERS Safety Report 23040286 (Version 1)
Quarter: 2023Q4

REPORT INFORMATION
  Report Type: Spontaneous
  Country: HR (occurrence: HR)
  Receive Date: 20231006
  Receipt Date: 20231006
  Transmission Date: 20240110
  Serious: Yes (Other)
  Sender: FDA-Public Use
  Company Number: None

PATIENT
  Age: 45 Year
  Sex: Female

DRUGS (1)
  1. PROVERA [Suspect]
     Active Substance: MEDROXYPROGESTERONE ACETATE
     Indication: Abnormal uterine bleeding
     Dosage: 10 MG, 2X/DAY
     Route: 048
     Dates: start: 20230715, end: 20230718

REACTIONS (1)
  - Panniculitis [Unknown]

NARRATIVE: CASE EVENT DATE: 20230716
